FAERS Safety Report 5838200-6 (Version None)
Quarter: 2008Q3

REPORT INFORMATION
  Report Type: 
  Country: None (occurrence: None)
  Receive Date: 20080808
  Receipt Date: 20080730
  Transmission Date: 20090109
  Serious: Yes (Other)
  Sender: FDA-Public Use
  Company Number: DE-JNJFOC-20080707408

PATIENT
  Age: 62 Year
  Sex: Female

DRUGS (6)
  1. REMICADE [Suspect]
     Dosage: 2ND INFUSION
     Route: 042
  2. REMICADE [Suspect]
     Dosage: 2ND INFUSION
     Route: 042
  3. REMICADE [Suspect]
     Indication: PSORIASIS
     Dosage: 1ST INFUSION
     Route: 042
  4. ACETAMINOPHEN [Concomitant]
     Indication: PREMEDICATION
     Route: 048
  5. PREDNISOLONE [Concomitant]
     Indication: PREMEDICATION
     Route: 048
  6. CLEMASTINE FUMARATE [Concomitant]
     Indication: PREMEDICATION

REACTIONS (3)
  - BONE PAIN [None]
  - INFUSION RELATED REACTION [None]
  - SEPSIS [None]
